FAERS Safety Report 7988278-9 (Version None)
Quarter: 2011Q4

REPORT INFORMATION
  Report Type: 
  Country: None (occurrence: None)
  Receive Date: 20111216
  Receipt Date: 20111212
  Transmission Date: 20120403
  Serious: Yes (Hospitalization)
  Sender: FDA-Public Use
  Company Number: JP-B.I. PHARMACEUTICALS,INC./RIDGEFIELD-2011-BP-24645NB

PATIENT
  Age: 74 Year
  Sex: Male
  Weight: 50.6 kg

DRUGS (7)
  1. RABEPRAZOLE SODIUM [Suspect]
     Dosage: 10 MG
     Route: 048
     Dates: end: 20110930
  2. METOPROLOL TARTRATE [Concomitant]
     Dosage: 20 MG
     Route: 048
  3. MAGMITT [Concomitant]
     Dosage: 660 MG
     Route: 048
  4. ASPIRIN [Concomitant]
     Dosage: 100 MG
     Route: 048
  5. PRADAXA [Suspect]
     Indication: ATRIAL FIBRILLATION
     Dosage: 220 MG
     Route: 048
     Dates: start: 20110721, end: 20110930
  6. PRAVASTATIN SODIUM [Suspect]
     Indication: HYPERLIPIDAEMIA
     Dosage: 5 MG
     Route: 048
     Dates: start: 20110923, end: 20110930
  7. TAMBOCOR [Concomitant]
     Dosage: 100 MG
     Route: 048

REACTIONS (1)
  - INTERSTITIAL LUNG DISEASE [None]
